FAERS Safety Report 24566105 (Version 1)
Quarter: 2024Q4

REPORT INFORMATION
  Report Type: Spontaneous
  Country: VN (occurrence: VN)
  Receive Date: 20241030
  Receipt Date: 20241030
  Transmission Date: 20250114
  Serious: Yes (Other)
  Sender: JOHNSON AND JOHNSON
  Company Number: VN-JNJFOC-20241073752

PATIENT
  Age: 50 Year
  Sex: Female

DRUGS (1)
  1. SIMPONI [Suspect]
     Active Substance: GOLIMUMAB
     Indication: Product used for unknown indication
     Route: 058

REACTIONS (4)
  - Type 2 diabetes mellitus [Unknown]
  - Lipid metabolism disorder [Unknown]
  - Hyperlipidaemia [Unknown]
  - Vitamin D deficiency [Unknown]

NARRATIVE: CASE EVENT DATE: 20201127
